FAERS Safety Report 8352301-2 (Version None)
Quarter: 2012Q2

REPORT INFORMATION
  Report Type: 
  Country: None (occurrence: None)
  Receive Date: 20120511
  Receipt Date: 20120503
  Transmission Date: 20120825
  Serious: Yes (Hospitalization, Other)
  Sender: FDA-Public Use
  Company Number: US-CELGENEUS-163-21880-12021991

PATIENT
  Sex: Female

DRUGS (17)
  1. REVLIMID [Suspect]
     Dosage: 1.4286 MILLIGRAM
     Route: 048
     Dates: start: 20120201, end: 20120423
  2. TERAZOSIN HCL [Concomitant]
     Route: 065
  3. VICODIN [Concomitant]
     Route: 065
  4. CARTIA XT [Concomitant]
     Route: 065
  5. HUMALOG [Concomitant]
     Route: 065
  6. VITAMIN E [Concomitant]
     Route: 065
  7. DEXAMETHASONE [Concomitant]
     Route: 065
  8. VYTORIN [Concomitant]
     Route: 065
  9. ASPIRIN [Concomitant]
     Route: 065
  10. FUROSEMIDE [Concomitant]
     Route: 065
  11. GABAPENTIN [Concomitant]
     Route: 065
  12. ALLOPURINOL [Concomitant]
     Route: 065
  13. REVLIMID [Suspect]
     Indication: MULTIPLE MYELOMA
     Dosage: 2.5 MILLIGRAM
     Route: 048
     Dates: start: 20110912
  14. FENOFIBRATE [Concomitant]
     Route: 065
  15. VITAMIN D [Concomitant]
     Route: 065
  16. CARVEDILOL [Concomitant]
     Route: 065
  17. DIOVAN [Concomitant]
     Route: 065

REACTIONS (5)
  - HAEMOGLOBIN DECREASED [None]
  - RENAL FAILURE [None]
  - PLATELET COUNT DECREASED [None]
  - ATRIAL FIBRILLATION [None]
  - CARDIAC FAILURE CHRONIC [None]
